FAERS Safety Report 6934022-3 (Version None)
Quarter: 2010Q3

REPORT INFORMATION
  Report Type: 
  Country: None (occurrence: None)
  Receive Date: 20100820
  Receipt Date: 20100810
  Transmission Date: 20110219
  Serious: Yes (Other)
  Sender: FDA-Public Use
  Company Number: US-PFIZER INC-2010101045

PATIENT
  Sex: Female

DRUGS (1)
  1. DILANTIN-125 [Suspect]
     Dosage: UNK

REACTIONS (3)
  - ANXIETY [None]
  - CONVULSION [None]
  - FEELING ABNORMAL [None]
